FAERS Safety Report 8156104-3 (Version None)
Quarter: 2012Q1

REPORT INFORMATION
  Report Type: 
  Country: None (occurrence: None)
  Receive Date: 20120222
  Receipt Date: 20120217
  Transmission Date: 20120608
  Serious: Yes (Other)
  Sender: FDA-Public Use
  Company Number: IT-PFIZER INC-2012044230

PATIENT
  Age: 29 Year
  Sex: Male

DRUGS (2)
  1. TRIMETON [Concomitant]
     Dosage: 4 MG
     Route: 048
  2. SOLU-MEDROL [Suspect]
     Indication: MULTIPLE SCLEROSIS
     Dosage: 1000 MG, AS NEEDED
     Route: 042
     Dates: start: 20120215, end: 20120215

REACTIONS (1)
  - THROAT TIGHTNESS [None]
